FAERS Safety Report 19558103 (Version 4)
Quarter: 2021Q3

REPORT INFORMATION
  Report Type: Spontaneous
  Country: CY (occurrence: CY)
  Receive Date: 20210714
  Receipt Date: 20210826
  Transmission Date: 20211014
  Serious: Yes (Hospitalization, Other)
  Sender: FDA-Public Use
  Company Number: CY-SAMSUNG BIOEPIS-SB-2021-16789

PATIENT
  Age: 33 Year
  Sex: Female
  Weight: 53 kg

DRUGS (8)
  1. PARCOTEN [Suspect]
     Active Substance: ACETAMINOPHEN\CODEINE PHOSPHATE
     Indication: PAIN
     Dosage: UNKNOWN
     Route: 065
  2. SALOFALK [Concomitant]
     Indication: PROCTITIS ULCERATIVE
     Route: 065
  3. MABRON [Suspect]
     Active Substance: TRAMADOL HYDROCHLORIDE
     Indication: BACK PAIN
     Route: 065
  4. CALCITONINA ALMIRAL [Suspect]
     Active Substance: CALCITONIN SALMON
     Indication: PAIN
     Dosage: 100 UI/ML
     Route: 065
     Dates: start: 20210527
  5. BENEPALI [Suspect]
     Active Substance: ETANERCEPT
     Indication: ANKYLOSING SPONDYLITIS
     Route: 058
     Dates: start: 201811
  6. MABRON [Suspect]
     Active Substance: TRAMADOL HYDROCHLORIDE
     Route: 065
     Dates: start: 20210530
  7. LONARID [Concomitant]
     Active Substance: ACETAMINOPHEN\AMOBARBITAL\CAFFEINE\CODEINE PHOSPHATE
     Indication: SACROILIITIS
     Dosage: UNKNOWN
     Route: 065
  8. SOLPADEINE [Concomitant]
     Indication: SACROILIITIS
     Dosage: UNKNOWN
     Route: 065

REACTIONS (19)
  - Thoracic vertebral fracture [Recovering/Resolving]
  - Night sweats [Recovered/Resolved]
  - Temporomandibular joint syndrome [Recovered/Resolved]
  - Lumbar vertebral fracture [Recovering/Resolving]
  - COVID-19 [Recovered/Resolved]
  - Constipation [Recovered/Resolved]
  - Bone marrow oedema [Unknown]
  - Osteoma [Not Recovered/Not Resolved]
  - Vertigo [Not Recovered/Not Resolved]
  - Sacroiliitis [Not Recovered/Not Resolved]
  - Insomnia [Recovered/Resolved]
  - Post procedural discomfort [Recovering/Resolving]
  - Fibroma [Unknown]
  - Diarrhoea [Recovering/Resolving]
  - Impaired healing [Unknown]
  - Drug ineffective [Unknown]
  - Vomiting [Recovering/Resolving]
  - Osteopenia [Unknown]
  - Osteoporosis [Unknown]

NARRATIVE: CASE EVENT DATE: 202010
